FAERS Safety Report 4882300-4 (Version None)
Quarter: 2006Q1

REPORT INFORMATION
  Report Type: 
  Country: None (occurrence: None)
  Receive Date: 20060117
  Receipt Date: 20051227
  Transmission Date: 20060701
  Serious: Yes (Hospitalization)
  Sender: FDA-Public Use
  Company Number: JP-BOEHRINGER INGELHEIM PHARMACEUTICALS, INC.-2005-BP-21885NB

PATIENT
  Sex: Female

DRUGS (8)
  1. MICARDIS [Suspect]
     Indication: HYPERTENSION
     Route: 048
  2. EUGLUCON [Suspect]
     Indication: DIABETES MELLITUS
     Route: 048
     Dates: end: 20051221
  3. MYSLEE [Concomitant]
     Route: 048
  4. RHYTHMY (RILMAZAFONE HYDROCHLORIDE) [Concomitant]
     Route: 048
  5. LASIX [Concomitant]
     Indication: CARDIAC FAILURE CONGESTIVE
     Route: 042
     Dates: start: 20051219, end: 20051221
  6. NITOROL [Concomitant]
     Indication: CARDIAC FAILURE CONGESTIVE
     Route: 042
     Dates: start: 20051219, end: 20051221
  7. MINOCYCLINE HCL [Concomitant]
     Route: 042
     Dates: start: 20051219, end: 20051222
  8. ASPIRIN [Concomitant]
     Route: 048

REACTIONS (3)
  - COLD SWEAT [None]
  - DEPRESSED LEVEL OF CONSCIOUSNESS [None]
  - HYPOGLYCAEMIA [None]
